FAERS Safety Report 12245758 (Version 1)
Quarter: 2016Q2

REPORT INFORMATION
  Report Type: Spontaneous
  Country: US (occurrence: US)
  Receive Date: 20160407
  Receipt Date: 20160407
  Transmission Date: 20160815
  Serious: No
  Sender: FDA-Public Use
  Company Number: US-ASTRAZENECA-2016SE23595

PATIENT
  Sex: Female

DRUGS (2)
  1. NEXIUM [Suspect]
     Active Substance: ESOMEPRAZOLE MAGNESIUM
     Indication: PAIN
     Route: 048
     Dates: start: 2014, end: 2016
  2. NEXIUM [Suspect]
     Active Substance: ESOMEPRAZOLE MAGNESIUM
     Indication: PAIN
     Dosage: UNKNOWN , DAILY
     Route: 048
     Dates: start: 201602

REACTIONS (5)
  - Abdominal pain upper [Unknown]
  - Off label use [Unknown]
  - Chest pain [Unknown]
  - Product use issue [Unknown]
  - Drug ineffective [Unknown]
